FAERS Safety Report 26204834 (Version 1)
Quarter: 2025Q4

REPORT INFORMATION
  Report Type: Spontaneous
  Country: US (occurrence: US)
  Receive Date: 20251227
  Receipt Date: 20251227
  Transmission Date: 20260118
  Serious: No
  Sender: SANOFI AVENTIS
  Company Number: US-SA-2025SA379987

PATIENT
  Age: 78 Year
  Sex: Female
  Weight: 63.64 kg

DRUGS (16)
  1. DUPIXENT [Suspect]
     Active Substance: DUPILUMAB
     Indication: Illness
     Dosage: 300 MG, QOW
     Route: 058
  2. AMBIEN [Concomitant]
     Active Substance: ZOLPIDEM TARTRATE
  3. LIPITOR [Concomitant]
     Active Substance: ATORVASTATIN CALCIUM
  4. BACLOFEN [Concomitant]
     Active Substance: BACLOFEN
  5. GLIPIZIDE [Concomitant]
     Active Substance: GLIPIZIDE
  6. METFORMIN HYDROCHLORIDE [Concomitant]
     Active Substance: METFORMIN HYDROCHLORIDE
  7. OXYCODONE HYDROCHLORIDE [Concomitant]
     Active Substance: OXYCODONE HYDROCHLORIDE
  8. POTASSIUM CHLORIDE [Concomitant]
     Active Substance: POTASSIUM CHLORIDE
  9. PREDNISONE [Concomitant]
     Active Substance: PREDNISONE
  10. CARAFATE [Concomitant]
     Active Substance: SUCRALFATE
  11. TRIAMTERENE AND HYDROCHLOROTHIAZIDE [Concomitant]
     Active Substance: HYDROCHLOROTHIAZIDE\TRIAMTERENE
  12. TRIAMCINOLONE ACETONIDE [Concomitant]
     Active Substance: TRIAMCINOLONE ACETONIDE
  13. DOCUSATE SODIUM [Concomitant]
     Active Substance: DOCUSATE SODIUM
  14. VITAMIN D3 [Concomitant]
     Active Substance: CHOLECALCIFEROL
  15. FENTANYL [Concomitant]
     Active Substance: FENTANYL
  16. FISH OIL [Concomitant]
     Active Substance: FISH OIL

REACTIONS (6)
  - Dry skin [Not Recovered/Not Resolved]
  - Skin exfoliation [Not Recovered/Not Resolved]
  - Cyst [Not Recovered/Not Resolved]
  - Skin ulcer [Not Recovered/Not Resolved]
  - Palliative radiation [Not Recovered/Not Resolved]
  - Rash [Not Recovered/Not Resolved]
